FAERS Safety Report 4375029-2 (Version None)
Quarter: 2004Q2

REPORT INFORMATION
  Report Type: 
  Country: None (occurrence: None)
  Receive Date: 20040604
  Receipt Date: 20040521
  Transmission Date: 20050107
  Serious: Yes (Other)
  Sender: FDA-Public Use
  Company Number: 2004-DE-02996GD

PATIENT
  Sex: Male

DRUGS (2)
  1. NEVIRAPINE (NEVIRAPINE) (NR) [Suspect]
     Indication: HIV INFECTION
     Dosage: NR (NR); NR
  2. D4T (STAVUDINE) (NR) [Suspect]
     Indication: HIV INFECTION
     Dosage: NR (NR); NR

REACTIONS (1)
  - DRUG INEFFECTIVE [None]
